FAERS Safety Report 25339479 (Version 1)
Quarter: 2025Q2

REPORT INFORMATION
  Report Type: Spontaneous
  Country: US (occurrence: US)
  Receive Date: 20250521
  Receipt Date: 20250521
  Transmission Date: 20250717
  Serious: No
  Sender: BIOGEN
  Company Number: US-BIOGEN-2024BI01285504

PATIENT
  Sex: Female

DRUGS (2)
  1. VUMERITY [Suspect]
     Active Substance: DIROXIMEL FUMARATE
     Indication: Multiple sclerosis
     Dosage: FOR 7 DAYS?START DATE ALSO REPORTED AS 12-SEP-2024
     Route: 050
     Dates: start: 20240916
  2. VUMERITY [Suspect]
     Active Substance: DIROXIMEL FUMARATE
     Route: 050
     Dates: start: 20240923

REACTIONS (5)
  - Extra dose administered [Unknown]
  - Night sweats [Unknown]
  - Epigastric discomfort [Unknown]
  - Gastrointestinal sounds abnormal [Unknown]
  - Flushing [Unknown]

NARRATIVE: CASE EVENT DATE: 20240101
